FAERS Safety Report 15611928 (Version 2)
Quarter: 2019Q2

REPORT INFORMATION
  Report Type: Spontaneous
  Country: US (occurrence: US)
  Receive Date: 20181113
  Receipt Date: 20190403
  Transmission Date: 20190711
  Serious: Yes (Other)
  Sender: FDA-Public Use
  Company Number: US-SA-2018SA309099

PATIENT
  Age: 61 Year
  Sex: Female
  Weight: 93 kg

DRUGS (7)
  1. LEVOTHYROXINE. [Concomitant]
     Active Substance: LEVOTHYROXINE
     Dosage: UNK
     Dates: start: 2000
  2. ESCITALOPRAM [Concomitant]
     Active Substance: ESCITALOPRAM OXALATE
     Dosage: UNK
     Dates: start: 2004
  3. PARAPLATIN [Concomitant]
     Active Substance: CARBOPLATIN
     Dosage: 670 MG, UNK
     Route: 042
     Dates: start: 20100527, end: 20100527
  4. TAXOTERE [Suspect]
     Active Substance: DOCETAXEL
     Indication: BREAST CANCER FEMALE
     Dosage: 140 MG, UNK
     Route: 042
     Dates: start: 20100527, end: 20100527
  5. NACL [Concomitant]
     Active Substance: SODIUM CHLORIDE
     Route: 042
  6. TAXOTERE [Suspect]
     Active Substance: DOCETAXEL
     Dosage: 140 MG, UNK
     Route: 042
     Dates: start: 20100916, end: 20100916
  7. PARAPLATIN [Concomitant]
     Active Substance: CARBOPLATIN
     Dosage: 670 MG, UNK
     Route: 042

REACTIONS (3)
  - Emotional distress [Unknown]
  - Psychological trauma [Unknown]
  - Alopecia [Not Recovered/Not Resolved]

NARRATIVE: CASE EVENT DATE: 2010
